FAERS Safety Report 5107002-0 (Version None)
Quarter: 2006Q3

REPORT INFORMATION
  Report Type: 
  Country: None (occurrence: None)
  Receive Date: 20060913
  Receipt Date: 20060901
  Transmission Date: 20061208
  Serious: Yes (Hospitalization, Other)
  Sender: FDA-Public Use
  Company Number: 2006-BP-10389RO

PATIENT
  Age: 61 Year
  Sex: Female

DRUGS (3)
  1. METHOTREXATE [Suspect]
     Indication: RHEUMATOID ARTHRITIS
     Dosage: 5 TO 7.5 MGWEEK (NR, 1 IN 1 WK), NR
     Dates: start: 19790101, end: 20050501
  2. NSAIDS (NSAID'S) [Concomitant]
  3. STERIODS (CORTICOSTEROID NOS) [Concomitant]

REACTIONS (11)
  - B-CELL LYMPHOMA [None]
  - BLOOD ALKALINE PHOSPHATASE INCREASED [None]
  - BLOOD LACTATE DEHYDROGENASE INCREASED [None]
  - BONE MARROW DISORDER [None]
  - HAEMOGLOBIN DECREASED [None]
  - LYMPHOPROLIFERATIVE DISORDER [None]
  - MIXED CONNECTIVE TISSUE DISEASE [None]
  - PLATELET COUNT DECREASED [None]
  - PULMONARY HYPERTENSION [None]
  - RIGHT VENTRICULAR FAILURE [None]
  - SPLENOMEGALY [None]
